FAERS Safety Report 17124787 (Version 1)
Quarter: 2019Q4

REPORT INFORMATION
  Report Type: Report from Study
  Country: US (occurrence: US)
  Receive Date: 20191206
  Receipt Date: 20191206
  Transmission Date: 20200122
  Serious: Yes (Death, Hospitalization, Other)
  Sender: FDA-Public Use
  Company Number: US-BAUSCH-BL-2019-057547

PATIENT
  Age: 63 Year
  Sex: Male
  Weight: 122.58 kg

DRUGS (9)
  1. XIFAXAN [Suspect]
     Active Substance: RIFAXIMIN
     Indication: HEPATIC CIRRHOSIS
     Route: 065
     Dates: start: 20180612, end: 20191005
  2. FOLIC ACID. [Concomitant]
     Active Substance: FOLIC ACID
     Indication: ALCOHOLISM
  3. METOPROLOL. [Concomitant]
     Active Substance: METOPROLOL
     Indication: HYPERTENSION
     Dosage: HALF TABLET
  4. MIDODRINE [Concomitant]
     Active Substance: MIDODRINE
     Indication: HYPERTENSION
  5. PANTOPRAZOLE [Concomitant]
     Active Substance: PANTOPRAZOLE
     Indication: PRODUCT USED FOR UNKNOWN INDICATION
     Dosage: UNKNOWN TABLET
  6. SPIRONOLACTONE. [Concomitant]
     Active Substance: SPIRONOLACTONE
     Indication: PRODUCT USED FOR UNKNOWN INDICATION
     Route: 048
  7. FUROSEMIDE. [Concomitant]
     Active Substance: FUROSEMIDE
     Indication: HYPERTENSION
  8. XIFAXAN [Suspect]
     Active Substance: RIFAXIMIN
     Route: 065
     Dates: start: 20191007, end: 201911
  9. LACTULOSE. [Concomitant]
     Active Substance: LACTULOSE
     Indication: CIRRHOSIS ALCOHOLIC

REACTIONS (5)
  - Encephalopathy [Unknown]
  - Product dose omission [Unknown]
  - Septic shock [Fatal]
  - Intensive care [Unknown]
  - Hospice care [Unknown]

NARRATIVE: CASE EVENT DATE: 20191005
